FAERS Safety Report 16065351 (Version 1)
Quarter: 2019Q1

REPORT INFORMATION
  Report Type: Spontaneous
  Country: US (occurrence: US)
  Receive Date: 20190313
  Receipt Date: 20190313
  Transmission Date: 20190418
  Serious: No
  Sender: FDA-Public Use
  Company Number: PHEH2019US010552

PATIENT
  Age: 46 Year
  Sex: Male

DRUGS (2)
  1. TAFINLAR [Suspect]
     Active Substance: DABRAFENIB MESYLATE
     Indication: CHRONIC MYELOID LEUKAEMIA
     Dosage: 75 MG, Q12H
     Route: 048
     Dates: start: 20180914
  2. MEKINIST [Suspect]
     Active Substance: TRAMETINIB DIMETHYL SULFOXIDE
     Indication: CHRONIC MYELOID LEUKAEMIA
     Dosage: 2 MG, QD
     Route: 048
     Dates: start: 20180914

REACTIONS (3)
  - Cough [Unknown]
  - Nasal congestion [Unknown]
  - Sneezing [Unknown]

NARRATIVE: CASE EVENT DATE: 20190305
